FAERS Safety Report 12389745 (Version 3)
Quarter: 2016Q4

REPORT INFORMATION
  Report Type: Report from Study
  Country: None (occurrence: BR)
  Receive Date: 20160520
  Receipt Date: 20161116
  Transmission Date: 20170207
  Serious: Yes (Hospitalization, Other)
  Sender: FDA-Public Use
  Company Number: BR-ABBVIE-16K-020-1627962-00

PATIENT
  Age: 62 Year
  Sex: Female
  Weight: 39 kg

DRUGS (2)
  1. HUMIRA [Suspect]
     Active Substance: ADALIMUMAB
     Indication: RHEUMATOID ARTHRITIS
     Route: 058
     Dates: start: 20130113, end: 201603
  2. CALCIUM [Concomitant]
     Active Substance: CALCIUM
     Indication: OSTEOPENIA
     Route: 048
     Dates: start: 1996

REACTIONS (11)
  - Blood cholesterol increased [Recovered/Resolved]
  - Malaise [Unknown]
  - Inflammation [Not Recovered/Not Resolved]
  - Secretion discharge [Unknown]
  - Weight decreased [Recovered/Resolved]
  - Oedema peripheral [Not Recovered/Not Resolved]
  - Malaise [Recovering/Resolving]
  - Pancreatitis acute [Recovering/Resolving]
  - Hypertension [Recovered/Resolved]
  - Swelling [Not Recovered/Not Resolved]
  - Pain [Recovering/Resolving]

NARRATIVE: CASE EVENT DATE: 2013
